FAERS Safety Report 25153133 (Version 1)
Quarter: 2025Q2

REPORT INFORMATION
  Report Type: Spontaneous
  Country: IT (occurrence: IT)
  Receive Date: 20250403
  Receipt Date: 20250403
  Transmission Date: 20250716
  Serious: Yes (Hospitalization, Other)
  Sender: AUROBINDO
  Company Number: IT-MINISAL02-1030692

PATIENT
  Age: 61 Year
  Sex: Female
  Weight: 70 kg

DRUGS (3)
  1. LAMOTRIGINE [Suspect]
     Active Substance: LAMOTRIGINE
     Indication: Epilepsy
     Route: 048
     Dates: start: 202501, end: 202503
  2. VALPROATE SODIUM [Suspect]
     Active Substance: VALPROATE SODIUM
     Indication: Epilepsy
     Dosage: 500 MILLIGRAM, TWO TIMES A DAY (500MG X 2 DIE)
     Route: 048
     Dates: start: 2023, end: 202501
  3. PAROXETINE [Concomitant]
     Active Substance: PAROXETINE
     Indication: Depression
     Route: 048
     Dates: start: 2023

REACTIONS (1)
  - Toxic epidermal necrolysis [Recovering/Resolving]

NARRATIVE: CASE EVENT DATE: 20250302
